FAERS Safety Report 12538402 (Version 1)
Quarter: 2016Q3

REPORT INFORMATION
  Report Type: Spontaneous
  Country: US (occurrence: US)
  Receive Date: 20160707
  Receipt Date: 20160707
  Transmission Date: 20161109
  Serious: Yes (Other)
  Sender: FDA-Public Use
  Company Number: US-FRI-1000085859

PATIENT
  Age: 39 Year
  Sex: Female

DRUGS (2)
  1. REXULTI [Concomitant]
     Active Substance: BREXPIPRAZOLE
     Dosage: 2MG
  2. VRAYLAR [Suspect]
     Active Substance: CARIPRAZINE
     Indication: BIPOLAR DISORDER
     Dosage: 1.5MG
     Route: 048
     Dates: start: 20160611, end: 20160614

REACTIONS (1)
  - Delirium [Recovered/Resolved]

NARRATIVE: CASE EVENT DATE: 20160614
